FAERS Safety Report 24748444 (Version 1)
Quarter: 2024Q4

REPORT INFORMATION
  Report Type: Spontaneous
  Country: US (occurrence: US)
  Receive Date: 20241218
  Receipt Date: 20241218
  Transmission Date: 20250115
  Serious: No
  Sender: AMGEN
  Company Number: US-AMGEN-USASP2024245068

PATIENT

DRUGS (1)
  1. PREDNISONE [Suspect]
     Active Substance: PREDNISONE
     Indication: Vasectomy reversal
     Dosage: 20 MILLIGRAM, TAPER (HIGH-DOSE ARMS)
     Route: 065

REACTIONS (3)
  - Semen analysis abnormal [Unknown]
  - Infertility male [Unknown]
  - Stress [Unknown]
